FAERS Safety Report 24150155 (Version 2)
Quarter: 2024Q3

REPORT INFORMATION
  Report Type: Spontaneous
  Country: US (occurrence: US)
  Receive Date: 20240730
  Receipt Date: 20240818
  Transmission Date: 20241016
  Serious: No
  Sender: LUPIN
  Company Number: US-LUPIN PHARMACEUTICALS INC.-2024-06863

PATIENT

DRUGS (2)
  1. ALBUTEROL SULFATE [Suspect]
     Active Substance: ALBUTEROL SULFATE
     Indication: Bronchitis
     Dosage: UNK, 2 PUFFS EVERY 4-6 HOURS
     Dates: start: 20240625
  2. ALBUTEROL SULFATE [Suspect]
     Active Substance: ALBUTEROL SULFATE
     Indication: Asthma
     Dosage: UNK, 8.5 GM

REACTIONS (4)
  - Dyspnoea [Unknown]
  - Cough [Unknown]
  - Drug dose omission by device [Unknown]
  - Device delivery system issue [Unknown]
